FAERS Safety Report 4883041-X (Version None)
Quarter: 2006Q1

REPORT INFORMATION
  Report Type: 
  Country: None (occurrence: None)
  Receive Date: 20060113
  Receipt Date: 20051226
  Transmission Date: 20060701
  Serious: Yes (Other)
  Sender: FDA-Public Use
  Company Number: FR_050907149

PATIENT
  Age: 83 Year
  Sex: Female

DRUGS (8)
  1. FORTEO [Suspect]
     Indication: OSTEOPOROSIS
     Dosage: 20 UG, DAILY (1/D), SUBCUTANEOUS
     Route: 058
     Dates: start: 20041230, end: 20051222
  2. PLAVIX [Concomitant]
  3. CORTANCYL (PREDNISONE) [Concomitant]
  4. IDEOS [Concomitant]
  5. XANAX [Concomitant]
  6. OMEPRAZOLE [Concomitant]
  7. FORTEO PEN (FORTEO PEN) PEN, DISPOSABLE [Concomitant]
  8. ASPIRIN [Concomitant]

REACTIONS (5)
  - DIVERTICULUM INTESTINAL [None]
  - GASTRIC HAEMORRHAGE [None]
  - GASTRIC POLYPS [None]
  - HEPATIC PAIN [None]
  - TREATMENT NONCOMPLIANCE [None]
